FAERS Safety Report 9204551 (Version 2)
Quarter: 2013Q2

REPORT INFORMATION
  Report Type: Spontaneous
  Country: US (occurrence: US)
  Receive Date: 20130402
  Receipt Date: 20130412
  Transmission Date: 20140414
  Serious: No
  Sender: FDA-Public Use
  Company Number: US-PFIZER INC-2013102448

PATIENT
  Age: 55 Year
  Sex: Female
  Weight: 86.2 kg

DRUGS (3)
  1. EFFEXOR XR [Suspect]
     Indication: MAJOR DEPRESSION
     Dosage: 150 MG, 1X/DAY
     Route: 048
     Dates: end: 201301
  2. EFFEXOR [Suspect]
     Indication: MAJOR DEPRESSION
     Dosage: UNK, 1X/DAY
     Dates: start: 201301
  3. EFFEXOR [Suspect]
     Dosage: 25 MG, 1X/DAY

REACTIONS (8)
  - Wrong technique in drug usage process [Unknown]
  - Hot flush [Unknown]
  - Nausea [Unknown]
  - Paraesthesia [Unknown]
  - Menopausal symptoms [Unknown]
  - Dizziness [Unknown]
  - Hypophagia [Unknown]
  - Withdrawal syndrome [Unknown]
